FAERS Safety Report 17483518 (Version 1)
Quarter: 2020Q1

REPORT INFORMATION
  Report Type: Spontaneous
  Country: US (occurrence: US)
  Receive Date: 20200301
  Receipt Date: 20200301
  Transmission Date: 20200409
  Serious: Yes (Life-Threatening, Hospitalization)
  Sender: FDA-Public Use
  Company Number: None

PATIENT
  Age: 67 Year
  Sex: Male
  Weight: 101 kg

DRUGS (1)
  1. HYDROMORPHONE [Suspect]
     Active Substance: HYDROMORPHONE

REACTIONS (15)
  - Oliguria [None]
  - Blood creatinine increased [None]
  - Hallucination [None]
  - Confusional state [None]
  - Malaise [None]
  - Dysuria [None]
  - Acute kidney injury [None]
  - Apnoea [None]
  - Somnolence [None]
  - Respiratory failure [None]
  - Abdominal pain [None]
  - Unresponsive to stimuli [None]
  - Encephalopathy [None]
  - Metabolic acidosis [None]
  - Device malfunction [None]

NARRATIVE: CASE EVENT DATE: 20200229
